FAERS Safety Report 4775954-4 (Version None)
Quarter: 2005Q3

REPORT INFORMATION
  Report Type: 
  Country: None (occurrence: None)
  Receive Date: 20050922
  Receipt Date: 20050913
  Transmission Date: 20060218
  Serious: Yes (Other)
  Sender: FDA-Public Use
  Company Number: FR-GLAXOSMITHKLINE-B0393869A

PATIENT
  Sex: Female

DRUGS (2)
  1. ONDANSETRON [Suspect]
     Route: 065
  2. HYCAMTIN [Suspect]
     Indication: PERITONEAL CARCINOMA
     Route: 042

REACTIONS (5)
  - ALOPECIA [None]
  - ASTHENIA [None]
  - CONSTIPATION [None]
  - NEUTROPENIA [None]
  - THROMBOCYTOPENIA [None]
